FAERS Safety Report 14945535 (Version 1)
Quarter: 2018Q2

REPORT INFORMATION
  Report Type: Spontaneous
  Country: TN (occurrence: TN)
  Receive Date: 20180529
  Receipt Date: 20180529
  Transmission Date: 20180711
  Serious: Yes (Life-Threatening, Hospitalization, Other)
  Sender: FDA-Public Use
  Company Number: TN-ACCORD-067396

PATIENT
  Age: 34 Year
  Sex: Female

DRUGS (11)
  1. ITRACONAZOLE. [Suspect]
     Active Substance: ITRACONAZOLE
     Indication: HISTOPLASMOSIS DISSEMINATED
     Dosage: 400 MG/DAY
  2. EFAVIRENZ. [Interacting]
     Active Substance: EFAVIRENZ
     Indication: HIV INFECTION
  3. DEXAMETHASONE. [Concomitant]
     Active Substance: DEXAMETHASONE
     Indication: CEREBRAL TOXOPLASMOSIS
     Dosage: LONG DURATION
  4. PYRIMETHAMINE/PYRIMETHAMINE BITARTRATE [Concomitant]
     Indication: CEREBRAL TOXOPLASMOSIS
  5. RIFAMPICIN [Concomitant]
     Active Substance: RIFAMPIN
     Indication: DISSEMINATED TUBERCULOSIS
  6. SULFADIAZINE/SULFADIAZINE SILVER/SULFADIAZINE SODIUM [Concomitant]
     Indication: CEREBRAL TOXOPLASMOSIS
  7. ETHAMBUTOL [Concomitant]
     Active Substance: ETHAMBUTOL HYDROCHLORIDE
     Indication: DISSEMINATED TUBERCULOSIS
  8. PYRAZINAMIDE. [Concomitant]
     Active Substance: PYRAZINAMIDE
     Indication: DISSEMINATED TUBERCULOSIS
  9. EMTRICITABINE/TENOFOVIR [Concomitant]
     Indication: HIV INFECTION
  10. CEFTRIAXONE. [Concomitant]
     Active Substance: CEFTRIAXONE
     Indication: DISSEMINATED TUBERCULOSIS
  11. ISONIAZID/ISONIAZID CALCIUM PYRUVINATE/ISONIAZID SODIUM GLUCURONATE [Concomitant]
     Indication: DISSEMINATED TUBERCULOSIS

REACTIONS (2)
  - Drug interaction [Unknown]
  - Treatment failure [Unknown]
